FAERS Safety Report 13694426 (Version 3)
Quarter: 2018Q1

REPORT INFORMATION
  Report Type: Spontaneous
  Country: US (occurrence: US)
  Receive Date: 20170627
  Receipt Date: 20180228
  Transmission Date: 20180508
  Serious: Yes (Hospitalization, Other)
  Sender: FDA-Public Use
  Company Number: US-PFIZER INC-2017277778

PATIENT
  Age: 74 Year
  Sex: Male
  Weight: 86.64 kg

DRUGS (1)
  1. XELJANZ [Suspect]
     Active Substance: TOFACITINIB CITRATE
     Indication: RHEUMATOID ARTHRITIS
     Dosage: 5 MG, 2X/DAY
     Route: 048
     Dates: end: 20171101

REACTIONS (3)
  - Hypotension [Unknown]
  - Atrial fibrillation [Unknown]
  - Colon cancer stage III [Recovered/Resolved]

NARRATIVE: CASE EVENT DATE: 20171101
